FAERS Safety Report 7717322-9 (Version None)
Quarter: 2011Q3

REPORT INFORMATION
  Report Type: 
  Country: None (occurrence: None)
  Receive Date: 20110826
  Receipt Date: 20110826
  Transmission Date: 20111222
  Serious: Yes (Disabling)
  Sender: FDA-Public Use
  Company Number: None

PATIENT
  Sex: Female
  Weight: 56.6996 kg

DRUGS (1)
  1. PREMARIN [Suspect]
     Indication: VAGINAL INFECTION
     Dosage: INSERT VAG 3 DAY A WEEK
     Route: 067
     Dates: start: 20110606

REACTIONS (2)
  - HEADACHE [None]
  - EYE PAIN [None]
